FAERS Safety Report 8581429-7 (Version None)
Quarter: 2012Q2

REPORT INFORMATION
  Report Type: 
  Country: None (occurrence: None)
  Receive Date: 20120423
  Receipt Date: 20100421
  Transmission Date: 20120825
  Serious: Yes (Other)
  Sender: FDA-Public Use
  Company Number: PHHY2010US25248

PATIENT
  Age: 64 Year
  Sex: Male
  Weight: 74.9 kg

DRUGS (6)
  1. EXJADE [Suspect]
     Indication: IRON METABOLISM DISORDER
     Dosage: 500 MG, DAILY, ORAL
     Route: 048
     Dates: start: 20090909
  2. DOXAZOSIN MESYLATE [Concomitant]
  3. CYCLOSPORINE [Concomitant]
  4. COLACE (DOCUSATE SODIUM) [Concomitant]
  5. TYLENOL PM (DIPHENHYDRAMINE, PARACETAMOL) [Concomitant]
  6. CENTRUM SILVER (ASCORBIC ACID, CALCIUM, MINERALS NOS, RETINOL, TOCOPHE [Concomitant]

REACTIONS (1)
  - HEPATIC FUNCTION ABNORMAL [None]
